FAERS Safety Report 5632787-4 (Version None)
Quarter: 2008Q1

REPORT INFORMATION
  Report Type: 
  Country: None (occurrence: None)
  Receive Date: 20080221
  Receipt Date: 20080214
  Transmission Date: 20080703
  Serious: Yes (Other)
  Sender: FDA-Public Use
  Company Number: US-JNJFOC-20071107699

PATIENT
  Sex: Female
  Weight: 74.84 kg

DRUGS (4)
  1. SIMPLY SLEEP NIGHTTIME [Suspect]
     Indication: INSOMNIA
     Dosage: 25-50 MG AS NECESSARY
     Route: 048
  2. UNSPECIFIED MEDICATIONS [Concomitant]
     Indication: OSTEOARTHRITIS
  3. UNSPECIFIED MEDICATIONS [Concomitant]
     Indication: RHEUMATOID ARTHRITIS
  4. VALIUM [Concomitant]
     Indication: FEELING OF RELAXATION
     Dosage: AS NEEDED

REACTIONS (5)
  - DYSURIA [None]
  - INITIAL INSOMNIA [None]
  - MUSCLE SPASMS [None]
  - THERAPEUTIC RESPONSE DELAYED [None]
  - TREMOR [None]
